FAERS Safety Report 7715200-2 (Version None)
Quarter: 2011Q3

REPORT INFORMATION
  Report Type: 
  Country: None (occurrence: None)
  Receive Date: 20110829
  Receipt Date: 20110822
  Transmission Date: 20111222
  Serious: Yes (Hospitalization)
  Sender: FDA-Public Use
  Company Number: PHHO2011MX14238

PATIENT
  Sex: Male

DRUGS (5)
  1. METOPROLOL TARTRATE [Suspect]
  2. ROSUVASTATIN [Concomitant]
     Dosage: UNK
     Dates: start: 20050705
  3. LISINOPRIL AND HYDROCHLOROTHIAZIDE [Suspect]
  4. ALLOPURINOL [Concomitant]
     Dosage: UNK
     Dates: start: 20071127
  5. CLONAZEPAM [Concomitant]
     Dosage: UNK
     Dates: start: 20050423

REACTIONS (2)
  - HYPOTENSION [None]
  - ASTHENIA [None]
